FAERS Safety Report 4870545-9 (Version None)
Quarter: 2005Q4

REPORT INFORMATION
  Report Type: 
  Country: None (occurrence: None)
  Receive Date: 20051228
  Receipt Date: 20051213
  Transmission Date: 20060501
  Serious: Yes (Death, Other)
  Sender: FDA-Public Use
  Company Number: US-2005-024983

PATIENT
  Age: 62 Year
  Sex: Male
  Weight: 57 kg

DRUGS (5)
  1. BETASERON [Suspect]
     Indication: SECONDARY PROGRESSIVE MULTIPLE SCLEROSIS
     Dosage: 8 MIU, EVERY 2D, SUBCUTANEOUS
     Route: 058
     Dates: start: 19950421, end: 20051027
  2. ARANESP [Concomitant]
  3. PROVIGIL [Concomitant]
  4. VICODIN [Concomitant]
  5. MORPHINE [Concomitant]

REACTIONS (4)
  - BEDRIDDEN [None]
  - DECUBITUS ULCER [None]
  - MYOCARDIAL INFARCTION [None]
  - PNEUMONIA [None]
